FAERS Safety Report 25088151 (Version 1)
Quarter: 2025Q1

REPORT INFORMATION
  Report Type: Spontaneous
  Country: US (occurrence: None)
  Receive Date: 20250317
  Receipt Date: 20250317
  Transmission Date: 20250408
  Serious: No
  Sender: FDA-CTU
  Company Number: None

PATIENT
  Age: 47 Year
  Sex: Female

DRUGS (1)
  1. COSENTYX [Suspect]
     Active Substance: SECUKINUMAB
     Indication: Hidradenitis
     Dosage: INJECTE 300MG (1 PEN) SUBCUTANEOUSLY ONCE  A WEEK FOR 5 WEEKS AS DIRECTED.?
     Route: 058
     Dates: start: 202403

REACTIONS (1)
  - Pneumonia [None]
